FAERS Safety Report 13901223 (Version 1)
Quarter: 2017Q3

REPORT INFORMATION
  Report Type: Spontaneous
  Country: CA (occurrence: CA)
  Receive Date: 20170824
  Receipt Date: 20170824
  Transmission Date: 20171127
  Serious: Yes (Hospitalization, Other)
  Sender: FDA-Public Use
  Company Number: CA-SUN PHARMACEUTICAL INDUSTRIES LTD-2016US-110202

PATIENT
  Age: 60 Year
  Sex: Female

DRUGS (10)
  1. 5-FLUOROURACIL [Suspect]
     Active Substance: FLUOROURACIL
     Indication: BREAST CANCER STAGE II
     Dosage: UNK
     Route: 065
  2. CYCLOPHOSPHAMIDE. [Suspect]
     Active Substance: CYCLOPHOSPHAMIDE
     Indication: BREAST CANCER STAGE II
     Dosage: UNK
     Route: 065
  3. DEXAMETHASONE. [Concomitant]
     Active Substance: DEXAMETHASONE
     Indication: BREAST CANCER STAGE II
     Route: 065
  4. HYDROXYQUININE [Concomitant]
  5. DOCETAXEL. [Suspect]
     Active Substance: DOCETAXEL
     Indication: BREAST CANCER STAGE II
     Dosage: UNK
     Route: 065
  6. PREDNISONE. [Concomitant]
     Active Substance: PREDNISONE
     Indication: BREAST CANCER STAGE II
     Route: 065
  7. PEG-FILGRASTIM [Concomitant]
     Active Substance: PEGFILGRASTIM
  8. CELECOXIB. [Concomitant]
     Active Substance: CELECOXIB
  9. DULOXETINE. [Concomitant]
     Active Substance: DULOXETINE
  10. EPIRUBICIN [Suspect]
     Active Substance: EPIRUBICIN
     Indication: BREAST CANCER STAGE II
     Dosage: UNK
     Route: 065

REACTIONS (4)
  - Epistaxis [Recovered/Resolved]
  - Disease progression [Recovered/Resolved]
  - Vaginal haemorrhage [Recovered/Resolved]
  - Subacute cutaneous lupus erythematosus [Recovered/Resolved]
